FAERS Safety Report 23307132 (Version 1)
Quarter: 2023Q4

REPORT INFORMATION
  Report Type: Spontaneous
  Country: US (occurrence: US)
  Receive Date: 20231218
  Receipt Date: 20231218
  Transmission Date: 20240110
  Serious: No
  Sender: FDA-Public Use
  Company Number: US-002147023-NVSC2023US267831

PATIENT
  Sex: Male
  Weight: 97.98 kg

DRUGS (1)
  1. LEQVIO [Suspect]
     Active Substance: INCLISIRAN SODIUM
     Indication: Blood cholesterol increased
     Dosage: 1.5 ML (DAY 1, THEN DAY 90, THEN EVERY 6 MONTHS)
     Route: 058
     Dates: start: 20231120

REACTIONS (1)
  - Alanine aminotransferase increased [Not Recovered/Not Resolved]
